FAERS Safety Report 23780514 (Version 2)
Quarter: 2024Q2

REPORT INFORMATION
  Report Type: Spontaneous
  Country: US (occurrence: US)
  Receive Date: 20240425
  Receipt Date: 20240501
  Transmission Date: 20240716
  Serious: Yes (Death, Other)
  Sender: FDA-Public Use
  Company Number: US-SUNPHARMA-2024R1-442966AA

PATIENT
  Age: 72 Year
  Sex: Male

DRUGS (4)
  1. HYDRALAZINE [Suspect]
     Active Substance: HYDRALAZINE HYDROCHLORIDE
     Indication: Cardiomyopathy
     Dosage: 50 MILLIGRAM, TID
     Route: 065
  2. ALDACTONE [Suspect]
     Active Substance: SPIRONOLACTONE
     Indication: Cardiomyopathy
     Dosage: 25 MILLIGRAM, QD
     Route: 065
  3. ENTRESTO [Suspect]
     Active Substance: SACUBITRIL\VALSARTAN
     Indication: Cardiomyopathy
     Dosage: 97-103MG, BID
     Route: 065
  4. ISORDIL [Suspect]
     Active Substance: ISOSORBIDE DINITRATE
     Indication: Cardiomyopathy
     Dosage: 40 MILLIGRAM, TID
     Route: 065

REACTIONS (1)
  - Condition aggravated [Fatal]
